FAERS Safety Report 9440149 (Version 1)
Quarter: 2013Q3

REPORT INFORMATION
  Report Type: Spontaneous
  Country: DK (occurrence: DK)
  Receive Date: 20130805
  Receipt Date: 20130805
  Transmission Date: 20140515
  Serious: Yes (Death)
  Sender: FDA-Public Use
  Company Number: DK-ELI_LILLY_AND_COMPANY-DK201307009513

PATIENT
  Sex: Male

DRUGS (2)
  1. ZYPADHERA [Suspect]
     Dosage: UNK, UNKNOWN
     Route: 065
  2. METADON [Interacting]
     Dosage: UNK, UNKNOWN
     Route: 065

REACTIONS (1)
  - Death [Fatal]
